FAERS Safety Report 8879550 (Version 2)
Quarter: 2013Q1

REPORT INFORMATION
  Report Type: Spontaneous
  Country: US (occurrence: US)
  Receive Date: 20121101
  Receipt Date: 20130103
  Transmission Date: 20140127
  Serious: Yes (Hospitalization)
  Sender: FDA-Public Use
  Company Number: US-ASTELLAS-2012US010511

PATIENT
  Age: 51 Year
  Sex: Male

DRUGS (5)
  1. AMBISOME [Suspect]
     Indication: MENINGITIS FUNGAL
     Dosage: 650 MG, UID/QD
     Route: 042
     Dates: start: 20121011, end: 20121014
  2. AMBISOME [Suspect]
     Dosage: 440 MG, UID/QD
     Route: 042
     Dates: start: 20121015, end: 20121018
  3. BENADRYL                           /00000402/ [Concomitant]
     Indication: PRODUCT USED FOR UNKNOWN INDICATION
     Dosage: UNK
     Route: 065
  4. TYLENOL /00020001/ [Concomitant]
     Indication: PRODUCT USED FOR UNKNOWN INDICATION
     Dosage: UNK
     Route: 065
  5. XANAX [Concomitant]
     Indication: ANXIETY
     Dosage: UNK
     Route: 065

REACTIONS (4)
  - Hospitalisation [Unknown]
  - Headache [Unknown]
  - Feeling abnormal [Unknown]
  - Treatment noncompliance [Unknown]
